FAERS Safety Report 4440274-4 (Version None)
Quarter: 2004Q3

REPORT INFORMATION
  Report Type: 
  Country: None (occurrence: None)
  Receive Date: 20040903
  Receipt Date: 20040607
  Transmission Date: 20050211
  Serious: No
  Sender: FDA-Public Use
  Company Number: S04-USA-02953-01

PATIENT
  Sex: Male

DRUGS (2)
  1. REQUIP [Suspect]
     Indication: PARKINSON'S DISEASE
     Route: 048
  2. NAMENDA [Suspect]
     Dosage: 10MG TWICE PER DAY
     Route: 048
     Dates: start: 20040301

REACTIONS (2)
  - AGITATION [None]
  - PANIC ATTACK [None]
